FAERS Safety Report 25826654 (Version 3)
Quarter: 2025Q4

REPORT INFORMATION
  Report Type: Spontaneous
  Country: JP (occurrence: JP)
  Receive Date: 20250920
  Receipt Date: 20251102
  Transmission Date: 20260118
  Serious: Yes (Other)
  Sender: BRISTOL-MYERS SQUIBB COMPANY
  Company Number: JP-TAIHO-2025-009864

PATIENT
  Age: 74 Year
  Sex: Male

DRUGS (3)
  1. ABRAXANE [Suspect]
     Active Substance: PACLITAXEL
     Indication: Non-small cell lung cancer
     Dosage: NI
     Route: 041
     Dates: start: 20241021, end: 20250818
  2. CARBOPLATIN [Concomitant]
     Active Substance: CARBOPLATIN
     Indication: Non-small cell lung cancer
     Dosage: NI?4 CYCLES
  3. TECENTRIQ [Concomitant]
     Active Substance: ATEZOLIZUMAB
     Indication: Non-small cell lung cancer
     Dosage: NI?4 CYCLES

REACTIONS (1)
  - Macular oedema [Recovering/Resolving]

NARRATIVE: CASE EVENT DATE: 20250818
